FAERS Safety Report 19943585 (Version 1)
Quarter: 2021Q4

REPORT INFORMATION
  Report Type: Spontaneous
  Country: DE (occurrence: DE)
  Receive Date: 20211012
  Receipt Date: 20211012
  Transmission Date: 20220303
  Serious: Yes (Hospitalization)
  Sender: FDA-Public Use
  Company Number: DE-ADRED-06581-01

PATIENT
  Age: 83 Year
  Sex: Male

DRUGS (1)
  1. AZACITIDINE [Suspect]
     Active Substance: AZACITIDINE
     Indication: Product used for unknown indication
     Dosage: UNK, NACH AML SCHEMA
     Route: 030

REACTIONS (3)
  - Pyrexia [Unknown]
  - Polyuria [Unknown]
  - Dizziness [Unknown]
